FAERS Safety Report 7425740-1 (Version None)
Quarter: 2011Q2

REPORT INFORMATION
  Report Type: 
  Country: None (occurrence: None)
  Receive Date: 20110418
  Receipt Date: 20110418
  Transmission Date: 20111010
  Serious: No
  Sender: FDA-Public Use
  Company Number: None

PATIENT
  Age: 38 Year
  Sex: Male
  Weight: 92.9874 kg

DRUGS (1)
  1. BIAXIN [Suspect]
     Indication: SINUSITIS
     Dosage: 500 MG 2X A DAY PO
     Route: 048
     Dates: start: 20110411, end: 20110415

REACTIONS (6)
  - INSOMNIA [None]
  - PANIC ATTACK [None]
  - MENTAL IMPAIRMENT [None]
  - URTICARIA [None]
  - PARAESTHESIA [None]
  - FLUSHING [None]
